FAERS Safety Report 5444399-6 (Version None)
Quarter: 2007Q3

REPORT INFORMATION
  Report Type: 
  Country: None (occurrence: None)
  Receive Date: 20070906
  Receipt Date: 20070903
  Transmission Date: 20080115
  Serious: Yes (Other)
  Sender: FDA-Public Use
  Company Number: PHRM2007FR02122

PATIENT
  Age: 75 Year
  Sex: Female

DRUGS (17)
  1. ZOMETA [Suspect]
     Indication: METASTASES TO BONE
     Route: 042
     Dates: start: 20050901, end: 20070630
  2. COVERSYL /FRA/ [Suspect]
     Indication: HYPERTENSION
     Dosage: 2 MG DAILY
     Route: 048
  3. KREDEX [Suspect]
     Dosage: 6.25 MG, BID
     Route: 048
     Dates: start: 20051201
  4. AROMASIN [Suspect]
     Indication: BREAST CANCER METASTATIC
     Dosage: 25 MG, QD
     Route: 048
     Dates: start: 20060901
  5. LEVOTHYROX [Suspect]
     Indication: HYPOTHYROIDISM
     Dosage: 100 UG, QD
     Route: 048
     Dates: start: 19890101
  6. PLAVIX [Suspect]
     Indication: ARTERITIS
     Dosage: 75 MG, QD
     Route: 048
     Dates: start: 20040101
  7. CORTANCYL [Suspect]
     Indication: RHEUMATOID ARTHRITIS
     Dosage: 15 MG, QD
     Route: 048
     Dates: start: 19870101
  8. LYRICA [Suspect]
     Indication: NEUROPATHY
     Dosage: 150 MG, BID
     Route: 048
     Dates: start: 20070301
  9. POTASSIUM CHLORIDE [Concomitant]
  10. TARDYFERON [Concomitant]
  11. NAVELBINE [Concomitant]
     Indication: BREAST CANCER METASTATIC
     Dosage: UNK, UNK
     Dates: start: 20050901, end: 20051201
  12. HERCEPTIN [Concomitant]
     Indication: BREAST CANCER METASTATIC
     Dosage: UNK, UNK
     Dates: start: 20050901, end: 20051201
  13. DUROGESIC [Concomitant]
     Dosage: 75 MG DAILY
     Dates: start: 20050901
  14. ACTISKENAN [Concomitant]
     Dates: start: 20050901
  15. ACETAMINOPHEN [Concomitant]
     Dates: start: 20050901
  16. FEMARA [Concomitant]
     Indication: BREAST CANCER METASTATIC
     Route: 048
     Dates: start: 20051201, end: 20060901
  17. CALCIDOSE [Concomitant]
     Indication: OSTEOPOROSIS
     Dates: start: 20070101

REACTIONS (4)
  - BONE SWELLING [None]
  - CARDIAC FAILURE [None]
  - OSTEONECROSIS [None]
  - PYREXIA [None]
